FAERS Safety Report 6708954-5 (Version None)
Quarter: 2010Q2

REPORT INFORMATION
  Report Type: 
  Country: None (occurrence: None)
  Receive Date: 20100504
  Receipt Date: 20100419
  Transmission Date: 20101027
  Serious: Yes (Hospitalization)
  Sender: FDA-Public Use
  Company Number: PHEH2010US03409

PATIENT
  Sex: Male
  Weight: 89.342 kg

DRUGS (1)
  1. AREDIA [Suspect]

REACTIONS (10)
  - ABDOMINAL PAIN [None]
  - ASTHENIA [None]
  - BLOOD GLUCOSE INCREASED [None]
  - CONSTIPATION [None]
  - DIABETIC KETOACIDOSIS [None]
  - DIASTOLIC DYSFUNCTION [None]
  - DYSPNOEA EXERTIONAL [None]
  - NAUSEA [None]
  - PANCREATITIS ACUTE [None]
  - WEIGHT DECREASED [None]
